FAERS Safety Report 9221256 (Version 4)
Quarter: 2013Q4

REPORT INFORMATION
  Report Type: Spontaneous
  Country: US (occurrence: US)
  Receive Date: 20130410
  Receipt Date: 20131030
  Transmission Date: 20140711
  Serious: No
  Sender: FDA-Public Use
  Company Number: US-BIOGENIDEC-2013BI015354

PATIENT
  Sex: Female

DRUGS (2)
  1. AVONEX [Suspect]
     Indication: MULTIPLE SCLEROSIS
     Route: 030
     Dates: start: 201210, end: 201211
  2. AVONEX [Suspect]
     Indication: MULTIPLE SCLEROSIS
     Route: 030
     Dates: start: 20121102

REACTIONS (10)
  - Fear of injection [Unknown]
  - Fear [Unknown]
  - Inappropriate affect [Unknown]
  - Influenza like illness [Not Recovered/Not Resolved]
  - Chills [Unknown]
  - Injection site pain [Unknown]
  - Depression [Not Recovered/Not Resolved]
  - Pyrexia [Unknown]
  - Anxiety [Unknown]
  - Depressed mood [Unknown]
